FAERS Safety Report 13923130 (Version 1)
Quarter: 2017Q3

REPORT INFORMATION
  Report Type: Spontaneous
  Country: GB (occurrence: GB)
  Receive Date: 20170831
  Receipt Date: 20170831
  Transmission Date: 20171127
  Serious: Yes (Hospitalization)
  Sender: FDA-Public Use
  Company Number: GB-ABBVIE-17K-167-2084010-00

PATIENT
  Sex: Female

DRUGS (1)
  1. DUODOPA [Suspect]
     Active Substance: CARBIDOPA\LEVODOPA
     Indication: PRODUCT USED FOR UNKNOWN INDICATION
     Dosage: 3.4ML/HOUR
     Route: 050
     Dates: start: 201512

REACTIONS (5)
  - Device leakage [Unknown]
  - Emergency care [Unknown]
  - Emotional distress [Unknown]
  - Device dislocation [Unknown]
  - Device connection issue [Unknown]

NARRATIVE: CASE EVENT DATE: 20170825
